FAERS Safety Report 5017246-4 (Version None)
Quarter: 2006Q2

REPORT INFORMATION
  Report Type: 
  Country: None (occurrence: None)
  Receive Date: 20060602
  Receipt Date: 20060501
  Transmission Date: 20061013
  Serious: Yes (Hospitalization)
  Sender: FDA-Public Use
  Company Number: US-ABBOTT-06P-163-0332194-00

PATIENT
  Sex: Female
  Weight: 89.438 kg

DRUGS (16)
  1. WARFARIN SODIUM [Suspect]
     Indication: DRUG USE FOR UNKNOWN INDICATION
     Route: 048
     Dates: start: 20051001
  2. RYTHMOL SR [Suspect]
     Indication: ATRIAL FIBRILLATION
     Route: 048
     Dates: start: 20060404, end: 20060419
  3. RYTHMOL SR [Suspect]
     Route: 048
     Dates: start: 20060420
  4. COUMADIN [Suspect]
     Indication: DRUG USE FOR UNKNOWN INDICATION
     Dates: start: 20060301, end: 20060407
  5. COUMADIN [Suspect]
  6. BACTRIM [Suspect]
     Indication: DRUG USE FOR UNKNOWN INDICATION
     Dates: start: 20060407
  7. SPIRONOLACTONE [Suspect]
     Indication: HYPERTENSION
     Route: 048
     Dates: start: 19660103
  8. QUININE SULFATE [Concomitant]
     Indication: MUSCLE SPASMS
     Dates: start: 19760102
  9. THYROID TAB [Concomitant]
     Indication: HYPOTHYROIDISM
     Dates: start: 19660103
  10. ACETYLSALICYLIC ACID SRT [Concomitant]
     Indication: CEREBROVASCULAR ACCIDENT
     Dates: start: 20051009
  11. ESTROGENS CONJUGATED [Concomitant]
     Indication: HORMONE REPLACEMENT THERAPY
     Dates: start: 19760102
  12. FUROSEMIDE [Concomitant]
     Indication: HYPERTENSION
     Dates: start: 19660103
  13. PREDNISONE [Concomitant]
     Indication: FIBROMYALGIA
     Dates: start: 19910301
  14. GLIPIZIDE [Concomitant]
     Indication: DIABETES MELLITUS
     Dates: start: 19960301
  15. CEFAZOLIN SODIUM [Concomitant]
     Indication: DRUG USE FOR UNKNOWN INDICATION
  16. CLINDAMYCIN [Concomitant]
     Indication: DRUG USE FOR UNKNOWN INDICATION

REACTIONS (13)
  - ATRIAL FIBRILLATION [None]
  - BLOOD CREATININE INCREASED [None]
  - BLOOD GLUCOSE DECREASED [None]
  - BLOOD POTASSIUM INCREASED [None]
  - BLOOD SODIUM DECREASED [None]
  - BLOOD UREA INCREASED [None]
  - CELLULITIS [None]
  - ECCHYMOSIS [None]
  - ELECTROLYTE IMBALANCE [None]
  - HYPERKALAEMIA [None]
  - INTERNATIONAL NORMALISED RATIO INCREASED [None]
  - PROTHROMBIN TIME PROLONGED [None]
  - SKIN ULCER [None]
